FAERS Safety Report 4327109-5 (Version None)
Quarter: 2004Q1

REPORT INFORMATION
  Report Type: 
  Country: None (occurrence: None)
  Receive Date: 20040322
  Receipt Date: 20031209
  Transmission Date: 20041129
  Serious: No
  Sender: FDA-Public Use
  Company Number: US-JNJFOC-20031202531

PATIENT
  Age: 20 Year
  Sex: Female
  Weight: 47.6277 kg

DRUGS (2)
  1. ORTHO TRI-CYCLEN LO [Suspect]
     Indication: CONTRACEPTION
     Dosage: 1 DOSE (S), 1 IN 1 DAY, ORAL
     Route: 048
     Dates: start: 20031201, end: 20031204
  2. PREVACID [Concomitant]

REACTIONS (4)
  - DYSFUNCTIONAL UTERINE BLEEDING [None]
  - DYSGEUSIA [None]
  - HEADACHE [None]
  - NAUSEA [None]
